FAERS Safety Report 17534501 (Version 2)
Quarter: 2023Q1

REPORT INFORMATION
  Report Type: Spontaneous
  Country: DE (occurrence: DE)
  Receive Date: 20200312
  Receipt Date: 20230209
  Transmission Date: 20230417
  Serious: Yes (Life-Threatening, Hospitalization, Other)
  Sender: FDA-Public Use
  Company Number: DE-ACCORD-170868

PATIENT
  Age: 24 Year
  Sex: Male

DRUGS (1)
  1. PEGFILGRASTIM [Suspect]
     Active Substance: PEGFILGRASTIM
     Indication: Leukopenia
     Dosage: UNK, 2 INJ
     Route: 065

REACTIONS (6)
  - Splenic rupture [Unknown]
  - Hyperleukocytosis [Unknown]
  - Shock haemorrhagic [Unknown]
  - Vomiting [Unknown]
  - Nausea [Unknown]
  - Intra-abdominal haemorrhage [Unknown]
